FAERS Safety Report 8508178-5 (Version None)
Quarter: 2012Q3

REPORT INFORMATION
  Report Type: 
  Country: None (occurrence: None)
  Receive Date: 20120713
  Receipt Date: 20120711
  Transmission Date: 20120928
  Serious: Yes (Hospitalization)
  Sender: FDA-Public Use
  Company Number: GB-PFIZER INC-2012165985

PATIENT
  Sex: Male
  Weight: 100 kg

DRUGS (3)
  1. AMLODIPINE BESYLATE [Suspect]
     Indication: HYPERTENSION
     Dosage: 5 MG, UNK
     Route: 048
     Dates: start: 20120613, end: 20120628
  2. ACETAMINOPHEN [Concomitant]
     Indication: PAIN
     Dosage: 500 MG, UNK
     Route: 048
     Dates: start: 20080101
  3. CODEINE SULFATE [Concomitant]
     Indication: PAIN
     Dosage: 30 MG, UNK
     Route: 048
     Dates: start: 20080101

REACTIONS (1)
  - TESTICULAR SWELLING [None]
